FAERS Safety Report 17461444 (Version 1)
Quarter: 2020Q1

REPORT INFORMATION
  Report Type: Other
  Country: CA (occurrence: CA)
  Receive Date: 20200226
  Receipt Date: 20200226
  Transmission Date: 20200409
  Serious: Yes (Disabling)
  Sender: FDA-Public Use
  Company Number: CA-APOTEX-2020AP007934

PATIENT
  Age: 31 Year
  Sex: Female
  Weight: 63 kg

DRUGS (1)
  1. APO-FLUVOXAMINE TABLETS [Suspect]
     Active Substance: FLUVOXAMINE MALEATE
     Indication: OBSESSIVE-COMPULSIVE DISORDER
     Dosage: 100 MG, BID
     Route: 048

REACTIONS (4)
  - Nausea [Recovered/Resolved]
  - Feeling jittery [Recovered/Resolved]
  - Tachyphrenia [Recovered/Resolved]
  - Agitation [Recovered/Resolved]
